FAERS Safety Report 15985284 (Version 2)
Quarter: 2019Q1

REPORT INFORMATION
  Report Type: Spontaneous
  Country: US (occurrence: US)
  Receive Date: 20190220
  Receipt Date: 20190301
  Transmission Date: 20190418
  Serious: No
  Sender: FDA-Public Use
  Company Number: US-SHIRE-US201904789

PATIENT
  Age: 59 Year
  Sex: Female
  Weight: 64.4 kg

DRUGS (3)
  1. XIIDRA [Suspect]
     Active Substance: LIFITEGRAST
     Dosage: 1 GTT DROPS,1X/DAY:QD
     Route: 047
     Dates: start: 20190115
  2. XIIDRA [Suspect]
     Active Substance: LIFITEGRAST
     Indication: DRY EYE
     Dosage: 1 GTT DROPS, 2X/DAY:BID
     Route: 047
     Dates: start: 201811
  3. PANTOPRAZOL [Concomitant]
     Active Substance: PANTOPRAZOLE SODIUM
     Indication: GASTROOESOPHAGEAL REFLUX DISEASE

REACTIONS (8)
  - Sinusitis [Not Recovered/Not Resolved]
  - Dysgeusia [Not Recovered/Not Resolved]
  - Off label use [Not Recovered/Not Resolved]
  - Product container issue [Unknown]
  - Abdominal discomfort [Not Recovered/Not Resolved]
  - Product packaging issue [Unknown]
  - Headache [Not Recovered/Not Resolved]
  - Instillation site pain [Not Recovered/Not Resolved]

NARRATIVE: CASE EVENT DATE: 201811
